FAERS Safety Report 5423825-2 (Version None)
Quarter: 2007Q3

REPORT INFORMATION
  Report Type: 
  Country: None (occurrence: None)
  Receive Date: 20070823
  Receipt Date: 20070817
  Transmission Date: 20080115
  Serious: Yes (Hospitalization, Other)
  Sender: FDA-Public Use
  Company Number: US-ELI_LILLY_AND_COMPANY-US200708003785

PATIENT
  Sex: Male

DRUGS (2)
  1. HUMULIN N [Suspect]
     Indication: DIABETES MELLITUS
     Dosage: 20 U, UNK
  2. HUMULIN N [Suspect]
     Dosage: 20 U, UNK

REACTIONS (5)
  - CEREBROVASCULAR ACCIDENT [None]
  - DIZZINESS [None]
  - MOTION SICKNESS [None]
  - MYOCARDIAL INFARCTION [None]
  - NAUSEA [None]
